FAERS Safety Report 4534211-1 (Version None)
Quarter: 2005Q1

REPORT INFORMATION
  Report Type: 
  Country: None (occurrence: None)
  Receive Date: 20041214
  Receipt Date: 20040831
  Transmission Date: 20050727
  Serious: No
  Sender: FDA-Public Use
  Company Number: 2004232998US

PATIENT
  Sex: Female

DRUGS (2)
  1. BEXTRA [Suspect]
     Dosage: 10 MG, QD, ORAL
     Route: 048
  2. SKELAXIN [Suspect]

REACTIONS (2)
  - DRUG INTERACTION [None]
  - RASH [None]
